FAERS Safety Report 8589331-1 (Version None)
Quarter: 2012Q3

REPORT INFORMATION
  Report Type: 
  Country: None (occurrence: None)
  Receive Date: 20120813
  Receipt Date: 20120731
  Transmission Date: 20120928
  Serious: Yes (Hospitalization)
  Sender: FDA-Public Use
  Company Number: DE-ELI_LILLY_AND_COMPANY-DE201110001673

PATIENT
  Sex: Female
  Weight: 52 kg

DRUGS (6)
  1. ZOPICLON [Concomitant]
     Indication: INSOMNIA
     Dosage: UNK
     Dates: start: 20110927
  2. IPRATROPIUM BROMIDE [Concomitant]
     Indication: DYSPNOEA
     Dosage: UNK
     Dates: start: 20110909
  3. GEMCITABINE HYDROCHLORIDE [Suspect]
     Indication: NON-SMALL CELL LUNG CANCER STAGE IV
     Dosage: 1899 MG, EVERY 21 DAYS/CYCLE
     Route: 042
     Dates: start: 20110920
  4. CISPLATIN [Suspect]
     Indication: NON-SMALL CELL LUNG CANCER STAGE IV
     Dosage: 114 MG, EVERY 21 DAYS/CYCLE
     Dates: start: 20110920
  5. ALBUTEROL SULFATE AUTOHALER [Concomitant]
     Indication: DYSPNOEA
     Dosage: UNK
     Dates: start: 20110909
  6. NECITUMUMAB (11F8) (LY3012211) [Suspect]
     Indication: NON-SMALL CELL LUNG CANCER STAGE IV
     Dosage: 800 MG, EVERY 21 DAYS/CYCLE
     Route: 042
     Dates: start: 20110920

REACTIONS (1)
  - RENAL INFARCT [None]
